FAERS Safety Report 25520635 (Version 4)
Quarter: 2025Q3

REPORT INFORMATION
  Report Type: Spontaneous
  Country: EU (occurrence: EU)
  Receive Date: 20250705
  Receipt Date: 20250728
  Transmission Date: 20251020
  Serious: Yes (Hospitalization, Other)
  Sender: AUROBINDO
  Company Number: EU-TEVA-VS-3341704

PATIENT
  Age: 70 Year
  Sex: Male

DRUGS (4)
  1. METFORMIN [Suspect]
     Active Substance: METFORMIN HYDROCHLORIDE
     Indication: Diabetes mellitus
     Route: 065
     Dates: start: 202206
  2. ROSUVASTATIN [Suspect]
     Active Substance: ROSUVASTATIN
     Indication: Dyslipidaemia
     Route: 065
     Dates: start: 202206
  3. LINAGLIPTIN [Concomitant]
     Active Substance: LINAGLIPTIN
     Indication: Diabetes mellitus
     Route: 065
     Dates: start: 2022
  4. INCLISIRAN [Concomitant]
     Active Substance: INCLISIRAN
     Indication: Diabetes mellitus
     Route: 065
     Dates: start: 202208

REACTIONS (4)
  - Rhabdomyolysis [Unknown]
  - Myoglobin blood increased [Unknown]
  - Renal failure [Recovering/Resolving]
  - Drug intolerance [Unknown]

NARRATIVE: CASE EVENT DATE: 20220601
